FAERS Safety Report 4326521-8 (Version None)
Quarter: 2004Q1

REPORT INFORMATION
  Report Type: 
  Country: None (occurrence: None)
  Receive Date: 20040322
  Receipt Date: 20040106
  Transmission Date: 20041129
  Serious: No
  Sender: FDA-Public Use
  Company Number: US-JNJFOC-20040101183

PATIENT
  Age: 34 Year
  Sex: Female
  Weight: 99.7913 kg

DRUGS (3)
  1. ORTHO TRI-CYCLEN LO [Suspect]
     Indication: CONTRACEPTION
     Dosage: 1 DOSE(S), 1 IN 1 DAY, ORAL
     Route: 048
  2. XENICAL [Concomitant]
  3. NAPROXEN [Concomitant]

REACTIONS (4)
  - ABDOMINAL PAIN [None]
  - HEADACHE [None]
  - MENSTRUATION IRREGULAR [None]
  - NAUSEA [None]
